FAERS Safety Report 5690721-5 (Version None)
Quarter: 2008Q2

REPORT INFORMATION
  Report Type: 
  Country: None (occurrence: None)
  Receive Date: 20080401
  Receipt Date: 20080319
  Transmission Date: 20081010
  Serious: Yes (Hospitalization)
  Sender: FDA-Public Use
  Company Number: FR-ELI_LILLY_AND_COMPANY-FR200802000037

PATIENT
  Age: 59 Year
  Sex: Female

DRUGS (8)
  1. CYMBALTA [Suspect]
     Indication: DEPRESSION
     Dosage: 60 MG, DAILY (1/D)
     Route: 048
     Dates: start: 20071203, end: 20080125
  2. INIPOMP [Concomitant]
     Dosage: 20 MG, DAILY (1/D)
     Route: 048
  3. HEMIPRALON [Concomitant]
     Dosage: 80 MG, DAILY (1/D)
     Route: 048
  4. INDORAMIN [Concomitant]
     Dosage: 25 MG, DAILY (1/D)
     Route: 048
  5. ESTIMA [Concomitant]
     Dosage: 100 MG, DAILY (1/D)
     Route: 048
  6. ALPRAZOLAM [Concomitant]
     Dosage: 0.5 MG, 3/D
     Route: 048
  7. NOCTRAN 10 [Concomitant]
     Dosage: 0.5 D/F, DAILY (1/D)
     Route: 048
  8. OESCLIM [Concomitant]
     Dosage: 25 U, 2/W
     Route: 050

REACTIONS (5)
  - DIARRHOEA [None]
  - HYPOKALAEMIA [None]
  - NAUSEA [None]
  - VOMITING [None]
  - WEIGHT DECREASED [None]
